FAERS Safety Report 21360041 (Version 5)
Quarter: 2022Q4

REPORT INFORMATION
  Report Type: Report from Study
  Country: CA (occurrence: None)
  Receive Date: 20220921
  Receipt Date: 20221026
  Transmission Date: 20230113
  Serious: Yes (Other)
  Sender: FDA-Public Use
  Company Number: 2022A317965

PATIENT
  Sex: Female

DRUGS (1)
  1. TAGRISSO [Suspect]
     Active Substance: OSIMERTINIB
     Indication: Non-small cell lung cancer stage II
     Route: 048
     Dates: start: 20220906, end: 20220911

REACTIONS (8)
  - Toxicity to various agents [Unknown]
  - Aphthous ulcer [Unknown]
  - Pyrexia [Unknown]
  - Decreased appetite [Unknown]
  - Stomatitis [Unknown]
  - Feeding disorder [Unknown]
  - Decreased appetite [Unknown]
  - Intentional product misuse [Unknown]
